FAERS Safety Report 8796367 (Version 1)
Quarter: 2012Q4

REPORT INFORMATION
  Report Type: 
  Country: AT (occurrence: AT)
  Receive Date: 20120919
  Receipt Date: 20120919
  Transmission Date: 20130627
  Serious: Yes (Death, Hospitalization, Other)
  Sender: FDA-Public Use
  Company Number: AT-WATSON-2012-16087

PATIENT
  Age: 14 Year
  Sex: Male

DRUGS (3)
  1. PREDNISONE (UNKNOWN) [Suspect]
     Indication: T-CELL TYPE ACUTE LEUKAEMIA
     Dosage: UNK
     Route: 065
  2. L-ASPARAGINASE [Suspect]
     Indication: T-CELL TYPE ACUTE LEUKAEMIA
     Dosage: UNK
     Route: 065
  3. HEPARIN [Suspect]
     Indication: T-CELL TYPE ACUTE LEUKAEMIA
     Dosage: UNK
     Route: 042

REACTIONS (7)
  - Sepsis [Fatal]
  - Clostridial infection [Not Recovered/Not Resolved]
  - Cardiac failure [Fatal]
  - Neutropenia [Fatal]
  - Hyponatraemia [Fatal]
  - Weight decreased [Fatal]
  - Myopathy [Fatal]
